FAERS Safety Report 7190374-3 (Version None)
Quarter: 2010Q4

REPORT INFORMATION
  Report Type: 
  Country: None (occurrence: None)
  Receive Date: 20101221
  Receipt Date: 20101221
  Transmission Date: 20110411
  Serious: No
  Sender: FDA-Public Use
  Company Number: None

PATIENT
  Sex: Male
  Weight: 116.1208 kg

DRUGS (1)
  1. RISPERDAL [Suspect]
     Dosage: 5MG 3X DAY 1 MORNING 2 NIGHT
     Dates: start: 20100301

REACTIONS (1)
  - WEIGHT INCREASED [None]
